FAERS Safety Report 17766035 (Version 9)
Quarter: 2021Q4

REPORT INFORMATION
  Report Type: Report from Study
  Country: GB (occurrence: GB)
  Receive Date: 20200511
  Receipt Date: 20211025
  Transmission Date: 20220303
  Serious: Yes (Other)
  Sender: FDA-Public Use
  Company Number: NVSC2020GB100755

PATIENT
  Age: 44 Year
  Sex: Female

DRUGS (3)
  1. SANDOSTATIN LAR DEPOT [Suspect]
     Active Substance: OCTREOTIDE ACETATE
     Indication: Neuroendocrine tumour
     Dosage: 30 MG, QMO (EVERY 4 WEEKS)
     Route: 030
  2. SANDOSTATIN LAR DEPOT [Suspect]
     Active Substance: OCTREOTIDE ACETATE
     Dosage: 30 MG, OTHER (EVERY 4 WEEKS)
     Route: 030
  3. SANDOSTATIN LAR DEPOT [Suspect]
     Active Substance: OCTREOTIDE ACETATE

REACTIONS (14)
  - Syncope [Unknown]
  - Hepatic neoplasm [Unknown]
  - Pelvic neoplasm [Unknown]
  - Gastric neoplasm [Unknown]
  - Hypotension [Unknown]
  - Flushing [Unknown]
  - Insomnia [Unknown]
  - Urinary tract infection [Recovered/Resolved]
  - Cystitis [Recovered/Resolved]
  - Polymenorrhoea [Unknown]
  - Heavy menstrual bleeding [Unknown]
  - Dizziness [Recovered/Resolved]
  - Headache [Unknown]
  - Needle issue [Unknown]

NARRATIVE: CASE EVENT DATE: 20200408
